FAERS Safety Report 23288734 (Version 1)
Quarter: 2023Q4

REPORT INFORMATION
  Report Type: Spontaneous
  Country: US (occurrence: US)
  Receive Date: 20231212
  Receipt Date: 20231212
  Transmission Date: 20240109
  Serious: No
  Sender: FDA-Public Use
  Company Number: US-SANOFI-01867262

PATIENT
  Sex: Female

DRUGS (1)
  1. DUPIXENT [Suspect]
     Active Substance: DUPILUMAB
     Dosage: UNK

REACTIONS (6)
  - Abdominal distension [Unknown]
  - Onychoclasis [Unknown]
  - Dyspnoea [Unknown]
  - Mood swings [Unknown]
  - Dry eye [Unknown]
  - Rash [Unknown]
